FAERS Safety Report 13220658 (Version 1)
Quarter: 2017Q1

REPORT INFORMATION
  Report Type: Other
  Country: US (occurrence: US)
  Receive Date: 20170211
  Receipt Date: 20170211
  Transmission Date: 20170428
  Serious: Yes (Hospitalization, Other)
  Sender: FDA-Public Use
  Company Number: US-ACORDA-ACO_129091_2016

PATIENT
  Age: 58 Year
  Sex: Female
  Weight: 71.66 kg

DRUGS (2)
  1. AMPYRA [Suspect]
     Active Substance: DALFAMPRIDINE
     Dosage: 10 MG, Q 12 HRS
     Route: 048
     Dates: start: 201503
  2. AMPYRA [Suspect]
     Active Substance: DALFAMPRIDINE
     Indication: MULTIPLE SCLEROSIS
     Dosage: 10 MG, BID
     Route: 048
     Dates: start: 2009

REACTIONS (3)
  - Breast cancer [Recovered/Resolved]
  - Procedural pain [Unknown]
  - Movement disorder [Unknown]

NARRATIVE: CASE EVENT DATE: 2016
